FAERS Safety Report 21503413 (Version 1)
Quarter: 2022Q4

REPORT INFORMATION
  Report Type: Report from Study
  Country: MX (occurrence: None)
  Receive Date: 20221025
  Receipt Date: 20221025
  Transmission Date: 20230113
  Serious: Yes (Other)
  Sender: FDA-Public Use
  Company Number: 2022A353001

PATIENT
  Age: 699 Month
  Sex: Female
  Weight: 63 kg

DRUGS (4)
  1. DAPAGLIFLOZIN [Suspect]
     Active Substance: DAPAGLIFLOZIN
     Indication: Cardiac disorder
     Route: 048
     Dates: start: 202205
  2. OMEPRAZOLE [Suspect]
     Active Substance: OMEPRAZOLE
     Route: 048
  3. METOPROLOL [Suspect]
     Active Substance: METOPROLOL
     Route: 048
  4. FUROSEMIDE [Concomitant]
     Active Substance: FUROSEMIDE

REACTIONS (21)
  - Haemoglobin increased [Unknown]
  - Urinary tract infection [Unknown]
  - Dizziness [Recovering/Resolving]
  - Dry mouth [Unknown]
  - Tooth disorder [Unknown]
  - Increased appetite [Unknown]
  - Gastritis [Unknown]
  - Constipation [Unknown]
  - Nausea [Unknown]
  - Headache [Recovering/Resolving]
  - Dysgeusia [Unknown]
  - Vomiting [Unknown]
  - Weight increased [Unknown]
  - Inflammation [Unknown]
  - Pain [Unknown]
  - Muscle spasms [Unknown]
  - Gastrointestinal sounds abnormal [Unknown]
  - Flatulence [Unknown]
  - Drug intolerance [Unknown]
  - Regurgitation [Unknown]
  - Product use issue [Unknown]

NARRATIVE: CASE EVENT DATE: 20220501
